FAERS Safety Report 7756830-1 (Version None)
Quarter: 2011Q3

REPORT INFORMATION
  Report Type: 
  Country: None (occurrence: None)
  Receive Date: 20110916
  Receipt Date: 20090528
  Transmission Date: 20111222
  Serious: Yes (Hospitalization)
  Sender: FDA-Public Use
  Company Number: CN-ROCHE-622074

PATIENT
  Sex: Male

DRUGS (8)
  1. METOCLOPRAMIDE [Concomitant]
     Dates: start: 20090202, end: 20090202
  2. OXALIPLATIN [Suspect]
     Route: 041
     Dates: start: 20090106
  3. TROPISETRON [Concomitant]
     Dates: start: 20090202, end: 20090202
  4. CAPECITABINE [Suspect]
     Dosage: DAY 1 - DAY 14, PERMANENTLY DISCONTINUED.
     Route: 048
     Dates: start: 20090202, end: 20090223
  5. DEXMETHSONE [Concomitant]
     Dates: start: 20090202, end: 20090202
  6. CAPECITABINE [Suspect]
     Route: 048
     Dates: start: 20090106
  7. OXALIPLATIN [Suspect]
     Route: 041
     Dates: start: 20090202, end: 20090223
  8. DIAZEPAM [Concomitant]
     Route: 065
     Dates: start: 20090202, end: 20090202

REACTIONS (2)
  - CHOLECYSTITIS ACUTE [None]
  - INTESTINAL OBSTRUCTION [None]
